FAERS Safety Report 9256359 (Version 1)
Quarter: 2013Q2

REPORT INFORMATION
  Report Type: Spontaneous
  Country: US (occurrence: US)
  Receive Date: 20130425
  Receipt Date: 20130425
  Transmission Date: 20140414
  Serious: No
  Sender: FDA-Public Use
  Company Number: US-009507513-1211USA003813

PATIENT
  Sex: Female
  Weight: 53.52 kg

DRUGS (3)
  1. CLARITIN [Suspect]
     Indication: HYPERSENSITIVITY
     Dosage: 10 MG, QD
     Route: 048
     Dates: end: 201212
  2. CLARITIN [Suspect]
     Indication: ANTACID THERAPY
  3. LORAZEPAM [Concomitant]
     Indication: ANXIETY
     Dosage: UNK, BID

REACTIONS (2)
  - Anxiety [Recovered/Resolved]
  - Therapeutic response unexpected [Unknown]
